FAERS Safety Report 12447806 (Version 3)
Quarter: 2016Q3

REPORT INFORMATION
  Report Type: Spontaneous
  Country: FR (occurrence: FR)
  Receive Date: 20160608
  Receipt Date: 20160811
  Transmission Date: 20161109
  Serious: Yes (Hospitalization)
  Sender: FDA-Public Use
  Company Number: FR-GUERBET LLC-1053511

PATIENT
  Age: 17 Year
  Sex: Female

DRUGS (1)
  1. OPTIJECT 350(IOVERSOL)(SOLUTION FOR INJECTION), OPTIRAY [Suspect]
     Active Substance: IOVERSOL
     Indication: SCAN BRAIN
     Route: 042
     Dates: start: 20160520, end: 20160520

REACTIONS (2)
  - Gait disturbance [Recovered/Resolved]
  - Erythema [Recovered/Resolved]

NARRATIVE: CASE EVENT DATE: 20160520
